FAERS Safety Report 9220251 (Version 1)
Quarter: 2013Q2

REPORT INFORMATION
  Report Type: Report from Study
  Country: US (occurrence: US)
  Receive Date: 20130409
  Receipt Date: 20130409
  Transmission Date: 20140414
  Serious: Yes (Hospitalization)
  Sender: FDA-Public Use
  Company Number: US-BAYER-2013-000061

PATIENT
  Age: 69 Year
  Sex: Female
  Weight: 53.97 kg

DRUGS (1)
  1. STIVARGA [Suspect]
     Indication: COLON CANCER METASTATIC
     Dosage: 160 MG, QD
     Route: 048

REACTIONS (7)
  - Hypertensive crisis [None]
  - Failure to thrive [None]
  - Nausea [None]
  - Vomiting [None]
  - Headache [None]
  - Transaminases increased [None]
  - Rash [None]
